FAERS Safety Report 20836144 (Version 2)
Quarter: 2022Q2

REPORT INFORMATION
  Report Type: Spontaneous
  Country: US (occurrence: US)
  Receive Date: 20220516
  Receipt Date: 20220618
  Transmission Date: 20220720
  Serious: No
  Sender: FDA-Public Use
  Company Number: US-BRISTOL-MYERS SQUIBB COMPANY-2022-024182

PATIENT
  Age: 75 Year
  Sex: Female

DRUGS (2)
  1. REVLIMID [Suspect]
     Active Substance: LENALIDOMIDE
     Indication: Plasma cell myeloma
     Dosage: TAKE 1 CAPSULE BY ?MOUTH DAILY ON ?DAYS 1-21 OF ?EACH 28-DAY ?CYCLE. TAKE ?WHOLE WITH ?WATER AT THE
     Route: 048
     Dates: start: 20220215
  2. REVLIMID [Suspect]
     Active Substance: LENALIDOMIDE
     Dosage: TAKE 1 CAPSULE BY ?MOUTH DAILY ON ?DAYS 1-21 OF ?EACH 28-DAY ?CYCLE. TAKE ?WHOLE WITH ?WATER AT THE
     Route: 048
     Dates: start: 20220215

REACTIONS (3)
  - Fatigue [Recovered/Resolved]
  - Constipation [Recovered/Resolved]
  - Arthropod bite [Not Recovered/Not Resolved]
